FAERS Safety Report 25620393 (Version 2)
Quarter: 2025Q3

REPORT INFORMATION
  Report Type: Spontaneous
  Country: US (occurrence: US)
  Receive Date: 20250730
  Receipt Date: 20250825
  Transmission Date: 20251021
  Serious: Yes (Hospitalization, Other)
  Sender: AUROBINDO
  Company Number: US-MLMSERVICE-20250710-PI574015-00270-1

PATIENT
  Age: 57 Year
  Sex: Male

DRUGS (2)
  1. METHYLPREDNISOLONE [Suspect]
     Active Substance: METHYLPREDNISOLONE
     Indication: Tubulointerstitial nephritis
     Route: 065
  2. RITUXIMAB [Concomitant]
     Active Substance: RITUXIMAB
     Indication: Tubulointerstitial nephritis
     Route: 065

REACTIONS (9)
  - Renal impairment [Unknown]
  - Bronchopleural fistula [Unknown]
  - Pulmonary necrosis [Recovering/Resolving]
  - Pulmonary cavitation [Recovering/Resolving]
  - Pneumonia [Recovering/Resolving]
  - Legionella infection [Recovering/Resolving]
  - Pneumothorax [Recovering/Resolving]
  - Hyponatraemia [Unknown]
  - Pleural effusion [Recovering/Resolving]
